FAERS Safety Report 6744826-8 (Version None)
Quarter: 2010Q2

REPORT INFORMATION
  Report Type: 
  Country: None (occurrence: None)
  Receive Date: 20100527
  Receipt Date: 20100308
  Transmission Date: 20101027
  Serious: No
  Sender: FDA-Public Use
  Company Number: US-BRISTOL-MYERS SQUIBB COMPANY-15007149

PATIENT
  Age: 55 Year
  Sex: Male

DRUGS (6)
  1. ONGLYZA [Suspect]
  2. TEMAZEPAM [Concomitant]
  3. TESTOSTERONE [Concomitant]
     Dosage: INJ
  4. NASACORT [Concomitant]
  5. HYZAAR [Concomitant]
  6. VERAPAMIL [Concomitant]
     Dosage: VERAPAMIL XR

REACTIONS (1)
  - RASH [None]
